FAERS Safety Report 8343445-X (Version None)
Quarter: 2012Q2

REPORT INFORMATION
  Report Type: 
  Country: None (occurrence: None)
  Receive Date: 20120508
  Receipt Date: 20120502
  Transmission Date: 20120825
  Serious: Yes (Other)
  Sender: FDA-Public Use
  Company Number: PHHY2012AR037428

PATIENT
  Sex: Male

DRUGS (1)
  1. EXFORGE [Suspect]
     Indication: HYPERTENSION
     Dosage: UNK UKN, UNK

REACTIONS (3)
  - MUSCULOSKELETAL CHEST PAIN [None]
  - BRONCHOPNEUMONIA [None]
  - INFLUENZA [None]
